FAERS Safety Report 20319271 (Version 1)
Quarter: 2022Q1

REPORT INFORMATION
  Report Type: Spontaneous
  Country: US (occurrence: US)
  Receive Date: 20220110
  Receipt Date: 20220110
  Transmission Date: 20220423
  Serious: No
  Sender: FDA-Public Use
  Company Number: US-PFIZER INC-202101375769

PATIENT
  Age: 56 Year
  Sex: Female
  Weight: 78.458 kg

DRUGS (1)
  1. IBRANCE [Suspect]
     Active Substance: PALBOCICLIB
     Indication: Breast cancer female
     Dosage: 100 MG, DAILY (DAILY FOR 21 DAYS)
     Route: 048
     Dates: start: 202003

REACTIONS (1)
  - Fatigue [Unknown]
